FAERS Safety Report 11712825 (Version 1)
Quarter: 2015Q4

REPORT INFORMATION
  Report Type: Spontaneous
  Country: US (occurrence: US)
  Receive Date: 20151104
  Receipt Date: 20151104
  Transmission Date: 20160304
  Serious: No
  Sender: FDA-Public Use
  Company Number: US-ELI_LILLY_AND_COMPANY-US201106004133

PATIENT
  Age: 65 Year
  Sex: Female

DRUGS (2)
  1. FORTEO [Suspect]
     Active Substance: TERIPARATIDE
     Dosage: 20 UG, QD
  2. FORTEO [Suspect]
     Active Substance: TERIPARATIDE
     Indication: OSTEOPOROSIS
     Dosage: 20 UG, DAILY (1/D)
     Dates: start: 20110607

REACTIONS (13)
  - Somnolence [Unknown]
  - Vertigo [Unknown]
  - Tremor [Unknown]
  - Drug dose omission [Unknown]
  - Vision blurred [Unknown]
  - Abdominal pain upper [Unknown]
  - Visual impairment [Unknown]
  - Erythema [Unknown]
  - Depression [Unknown]
  - Muscle spasms [Unknown]
  - Blindness [Unknown]
  - Speech disorder [Unknown]
  - Dizziness [Not Recovered/Not Resolved]

NARRATIVE: CASE EVENT DATE: 20110628
